FAERS Safety Report 13023760 (Version 1)
Quarter: 2016Q4

REPORT INFORMATION
  Report Type: Spontaneous
  Country: FR (occurrence: FR)
  Receive Date: 20161213
  Receipt Date: 20161213
  Transmission Date: 20170207
  Serious: Yes (Other)
  Sender: FDA-Public Use
  Company Number: PHHY2016FR168897

PATIENT
  Age: 79 Year
  Sex: Female

DRUGS (2)
  1. APO HYDROXYCHLOROQUINE [Concomitant]
     Indication: SYSTEMIC LUPUS ERYTHEMATOSUS
     Dosage: UNK
     Route: 065
  2. ZOLEDRONATE [Suspect]
     Active Substance: ZOLEDRONIC ACID
     Indication: OSTEOPOROSIS PROPHYLAXIS
     Dosage: 5 MG, UNK
     Route: 042

REACTIONS (5)
  - Pyrexia [Unknown]
  - Arthralgia [Unknown]
  - Neck pain [Unknown]
  - Osteoarthritis [Unknown]
  - Chondrocalcinosis [Recovered/Resolved]
